FAERS Safety Report 17873498 (Version 1)
Quarter: 2020Q2

REPORT INFORMATION
  Report Type: Spontaneous
  Country: BR (occurrence: BR)
  Receive Date: 20200609
  Receipt Date: 20200609
  Transmission Date: 20200714
  Serious: Yes (Other)
  Sender: FDA-Public Use
  Company Number: BR-ABBVIE-20P-020-3435467-00

PATIENT
  Sex: Male
  Weight: 20 kg

DRUGS (2)
  1. TIMOLOL. [Concomitant]
     Active Substance: TIMOLOL
     Indication: DEVELOPMENTAL GLAUCOMA
     Dosage: DD: 2 DROPS; ADMINISTERED IN BOTH EYES
     Route: 047
  2. DEPAKENE [Suspect]
     Active Substance: VALPROIC ACID
     Indication: SEIZURE
     Dosage: DD:10ML; FREQUENCY: MORNING/NIGHT?50MG/ML
     Route: 048
     Dates: start: 2018

REACTIONS (8)
  - Short stature [Unknown]
  - Hypovitaminosis [Unknown]
  - Seizure [Unknown]
  - Extra dose administered [Unknown]
  - Product use issue [Unknown]
  - Nausea [Not Recovered/Not Resolved]
  - Decreased appetite [Not Recovered/Not Resolved]
  - Off label use [Unknown]

NARRATIVE: CASE EVENT DATE: 2019
